FAERS Safety Report 20855555 (Version 3)
Quarter: 2022Q2

REPORT INFORMATION
  Report Type: Spontaneous
  Country: US (occurrence: US)
  Receive Date: 20220520
  Receipt Date: 20220629
  Transmission Date: 20220721
  Serious: Yes (Hospitalization)
  Sender: FDA-Public Use
  Company Number: US-ELI_LILLY_AND_COMPANY-US202204007069

PATIENT
  Sex: Male
  Weight: 72.109 kg

DRUGS (10)
  1. TADALAFIL [Suspect]
     Active Substance: TADALAFIL
     Indication: Pulmonary arterial hypertension
     Dosage: UNK UNK, UNKNOWN
     Route: 065
  2. TYVASO [Suspect]
     Active Substance: TREPROSTINIL
     Indication: Pulmonary arterial hypertension
     Dosage: 12-16 BREATHS QID
     Route: 055
     Dates: start: 20210713
  3. TYVASO [Suspect]
     Active Substance: TREPROSTINIL
     Dosage: 12-16 BREATHS QID
     Route: 055
  4. TYVASO [Suspect]
     Active Substance: TREPROSTINIL
     Dosage: 18-54 UG, ONE IN 6HR
     Route: 055
     Dates: start: 202107
  5. TYVASO [Suspect]
     Active Substance: TREPROSTINIL
     Dosage: 36 UG, DAILY
     Route: 055
     Dates: start: 2021
  6. TYVASO [Suspect]
     Active Substance: TREPROSTINIL
     Dosage: 60-120U G ONE IN 6 HR
     Route: 055
  7. TYVASO [Suspect]
     Active Substance: TREPROSTINIL
     Dosage: 12-16 BREATHS QID
     Route: 055
  8. OFEV [Suspect]
     Active Substance: NINTEDANIB
     Indication: Product used for unknown indication
     Dosage: 300 MG, DAILY
     Route: 065
  9. OFEV [Suspect]
     Active Substance: NINTEDANIB
     Dosage: UNK UNK, UNKNOWN
     Route: 065
     Dates: start: 20220616
  10. OXYGEN [Concomitant]
     Active Substance: OXYGEN
     Indication: Product used for unknown indication

REACTIONS (24)
  - Pulmonary arterial hypertension [Unknown]
  - Skin tightness [Unknown]
  - Rosacea [Unknown]
  - Dizziness postural [Unknown]
  - Faeces pale [Unknown]
  - Ear discomfort [Unknown]
  - Dry skin [Unknown]
  - Decreased appetite [Unknown]
  - Oxygen saturation decreased [Unknown]
  - Weight decreased [Unknown]
  - Pruritus [Unknown]
  - Cough [Not Recovered/Not Resolved]
  - Head discomfort [Unknown]
  - Chest discomfort [Unknown]
  - Rash [Unknown]
  - Blood pressure increased [Unknown]
  - Fatigue [Unknown]
  - Blood pressure decreased [Unknown]
  - Dyspnoea [Unknown]
  - Headache [Unknown]
  - Diarrhoea [Not Recovered/Not Resolved]
  - Rash erythematous [Unknown]
  - Abdominal discomfort [Unknown]
  - Dizziness [Unknown]

NARRATIVE: CASE EVENT DATE: 20200101
